FAERS Safety Report 20430634 (Version 1)
Quarter: 2022Q1

REPORT INFORMATION
  Report Type: Report from Study
  Country: DE (occurrence: DE)
  Receive Date: 20220204
  Receipt Date: 20220204
  Transmission Date: 20220423
  Serious: Yes (Other)
  Sender: FDA-Public Use
  Company Number: DE-JAZZ-2020-DE-017010

PATIENT

DRUGS (2)
  1. PEGASPARGASE [Suspect]
     Active Substance: PEGASPARGASE
     Indication: Product used for unknown indication
     Dosage: UNK
     Route: 065
  2. ERWINASE [Suspect]
     Active Substance: ASPARAGINASE ERWINIA CHRYSANTHEMI
     Indication: Acute lymphocytic leukaemia
     Dosage: UNKNOWN DOSE
     Route: 065

REACTIONS (1)
  - Drug intolerance [Recovered/Resolved]

NARRATIVE: CASE EVENT DATE: 20200101
